FAERS Safety Report 4768802-X (Version None)
Quarter: 2005Q3

REPORT INFORMATION
  Report Type: 
  Country: None (occurrence: None)
  Receive Date: 20050914
  Receipt Date: 20050901
  Transmission Date: 20060218
  Serious: Yes (Death)
  Sender: FDA-Public Use
  Company Number: USA-2005-0021038

PATIENT
  Age: 89 Year
  Sex: Female

DRUGS (6)
  1. OXYCONTIN [Suspect]
     Indication: PAIN
     Dosage: 10 MG, BID
  2. VICODIN [Concomitant]
  3. FOSAMAX [Concomitant]
  4. XANAX [Concomitant]
  5. TOPROL-XL [Concomitant]
  6. ATARAX [Concomitant]

REACTIONS (1)
  - PNEUMONIA [None]
